FAERS Safety Report 5684030-8 (Version None)
Quarter: 2008Q1

REPORT INFORMATION
  Report Type: 
  Country: None (occurrence: None)
  Receive Date: 20080328
  Receipt Date: 20080319
  Transmission Date: 20080703
  Serious: Yes (Other)
  Sender: FDA-Public Use
  Company Number: FR-ROCHE-555156

PATIENT
  Age: 22 Year
  Sex: Male
  Weight: 65 kg

DRUGS (1)
  1. ROACCUTANE [Suspect]
     Indication: ACNE
     Dosage: TDD: 20 TO 40 MG.
     Route: 048
     Dates: start: 20060301, end: 20070301

REACTIONS (2)
  - ARTHRALGIA [None]
  - PUBIC PAIN [None]
